FAERS Safety Report 7858047-9 (Version None)
Quarter: 2011Q4

REPORT INFORMATION
  Report Type: 
  Country: None (occurrence: None)
  Receive Date: 20111027
  Receipt Date: 20111012
  Transmission Date: 20120403
  Serious: Yes (Hospitalization)
  Sender: FDA-Public Use
  Company Number: US-BAYER-2011-009715

PATIENT
  Age: 27 Year
  Sex: Female

DRUGS (6)
  1. YAZ [Suspect]
     Indication: PRODUCT USED FOR UNKNOWN INDICATION
     Dosage: UNK
     Dates: start: 20090901, end: 20100701
  2. AMOXICILLIN [Concomitant]
     Dosage: 500 MG, UNK
     Dates: start: 20100401
  3. DOXYCYCLINE HYCLATE [Concomitant]
     Dosage: 100 MG, UNK
  4. PHENERGAN W/ CODEINE [Concomitant]
  5. ALBUTEROL SULFATE [Concomitant]
     Dosage: 90 ?G, UNK
     Route: 055
  6. CODEINE-GUAIFENESIN [Concomitant]

REACTIONS (9)
  - CHEST PAIN [None]
  - PAIN IN EXTREMITY [None]
  - FATIGUE [None]
  - ANXIETY [None]
  - SYNCOPE [None]
  - PAIN [None]
  - PULMONARY EMBOLISM [None]
  - EMOTIONAL DISTRESS [None]
  - ASTHENIA [None]
